FAERS Safety Report 8347222 (Version 7)
Quarter: 2012Q4

REPORT INFORMATION
  Report Type: 
  Country: US (occurrence: US)
  Receive Date: 20120120
  Receipt Date: 20121221
  Transmission Date: 20130627
  Serious: Yes (Hospitalization)
  Sender: FDA-Public Use
  Company Number: PHHO2011US15481

PATIENT
  Age: 71 Year
  Sex: Female
  Weight: 54.1 kg

DRUGS (11)
  1. CERTICAN [Suspect]
     Indication: RENAL TRANSPLANT
     Dosage: 0.75 mg, BID
     Route: 048
     Dates: start: 20110128, end: 20110202
  2. CERTICAN [Suspect]
     Dosage: 1.5 mg, BID
     Route: 048
     Dates: start: 20110203, end: 20110909
  3. CERTICAN [Suspect]
     Dosage: 0.75 mg, BID
     Route: 048
     Dates: start: 20110910, end: 20120117
  4. MYCOPHENOLATE MOFETIL [Suspect]
     Indication: RENAL TRANSPLANT
     Dosage: 250 mg, BID
     Route: 048
     Dates: start: 20120124, end: 20120129
  5. LEFLUNOMIDE [Suspect]
  6. PREDNISONE [Suspect]
     Indication: RENAL TRANSPLANT
     Dosage: 2.5 mg, QD
     Route: 048
     Dates: start: 20110128
  7. PREDNISONE [Suspect]
     Indication: IMMUNOSUPPRESSION
  8. PROGRAF [Suspect]
     Indication: RENAL TRANSPLANT
     Dosage: 0.5 mg, BID
     Route: 048
     Dates: start: 20110128
  9. PROGRAF [Suspect]
     Indication: IMMUNOSUPPRESSION
  10. VALCYTE [Suspect]
     Indication: CYTOMEGALOVIRUS VIRAEMIA
     Dosage: 450 mg, BID
     Route: 048
     Dates: start: 20110825
  11. LASIX [Concomitant]

REACTIONS (4)
  - Thrombocytopenia [Not Recovered/Not Resolved]
  - Atypical pneumonia [Not Recovered/Not Resolved]
  - Diarrhoea [Recovered/Resolved]
  - Pyrexia [Recovered/Resolved]
